FAERS Safety Report 7489177-1 (Version None)
Quarter: 2011Q2

REPORT INFORMATION
  Report Type: 
  Country: None (occurrence: None)
  Receive Date: 20110518
  Receipt Date: 20110513
  Transmission Date: 20111010
  Serious: Yes (Hospitalization)
  Sender: FDA-Public Use
  Company Number: ZA-GENZYME-MOZO-1000511

PATIENT
  Age: 19 Year
  Sex: Female
  Weight: 58 kg

DRUGS (4)
  1. FILGRASTIM [Concomitant]
     Indication: PRODUCT USED FOR UNKNOWN INDICATION
     Dosage: 300 MG, BID
     Route: 058
  2. MOZOBIL [Suspect]
     Indication: HODGKIN'S DISEASE
  3. PANADO [Concomitant]
     Indication: PRODUCT USED FOR UNKNOWN INDICATION
     Dosage: 1 G, TID
     Route: 048
  4. MOZOBIL [Suspect]
     Indication: HAEMATOPOIETIC STEM CELL MOBILISATION
     Dosage: 13 MG, QD
     Route: 058
     Dates: start: 20110503, end: 20110504

REACTIONS (1)
  - PARAESTHESIA ORAL [None]
